FAERS Safety Report 19410216 (Version 1)
Quarter: 2021Q2

REPORT INFORMATION
  Report Type: Spontaneous
  Country: KR (occurrence: KR)
  Receive Date: 20210614
  Receipt Date: 20210614
  Transmission Date: 20210717
  Serious: Yes (Other)
  Sender: FDA-Public Use
  Company Number: KR-SA-2021SA186109

PATIENT
  Age: 55 Year
  Sex: Male

DRUGS (13)
  1. ELOXATIN [Suspect]
     Active Substance: OXALIPLATIN
     Indication: PANCREATIC CARCINOMA
     Dosage: 147.9 MG/M2, QCY
     Dates: start: 201702
  2. ELOXATIN [Suspect]
     Active Substance: OXALIPLATIN
     Dosage: 25% DOSE USED
     Dates: start: 201712
  3. FLUOROURACIL. [Suspect]
     Active Substance: FLUOROURACIL
     Indication: PANCREATIC CARCINOMA
     Dosage: 2784 MG/M2, QCY
     Dates: start: 201702
  4. FLUOROURACIL. [Suspect]
     Active Substance: FLUOROURACIL
     Dosage: 25% DOSE USED
     Dates: start: 201712
  5. LEUCOVORIN [FOLINIC ACID] [Suspect]
     Active Substance: LEUCOVORIN
     Dosage: 50% DOSE WAS USED
  6. ELOXATIN [Suspect]
     Active Substance: OXALIPLATIN
     Dosage: 50% DOSE WAS USED
  7. IRINOTECAN [Suspect]
     Active Substance: IRINOTECAN
     Indication: PANCREATIC CARCINOMA
     Dosage: 313.2 MG/M2, QCY
     Dates: start: 201702
  8. IRINOTECAN [Suspect]
     Active Substance: IRINOTECAN
     Dosage: 25% DOSE USED
     Dates: start: 201712
  9. FLUOROURACIL. [Suspect]
     Active Substance: FLUOROURACIL
     Dosage: 50% DOSE WAS USED
  10. LEUCOVORIN [FOLINIC ACID] [Suspect]
     Active Substance: LEUCOVORIN
     Indication: PANCREATIC CARCINOMA
     Dosage: 348 MG/M2, QCY
     Dates: start: 201702
  11. LEUCOVORIN [FOLINIC ACID] [Suspect]
     Active Substance: LEUCOVORIN
     Dosage: 25% DOSE USED
     Dates: start: 201712
  12. XELODA [Suspect]
     Active Substance: CAPECITABINE
     Indication: PANCREATIC CARCINOMA
     Dosage: UNK
     Dates: start: 201709
  13. IRINOTECAN [Suspect]
     Active Substance: IRINOTECAN
     Dosage: 50% DOSE WAS USED

REACTIONS (8)
  - Drug-induced liver injury [Recovered/Resolved]
  - Hypersplenism [Recovered/Resolved]
  - Hepatic atrophy [Recovered/Resolved]
  - Neutropenia [Recovered/Resolved]
  - Thrombocytopenia [Recovered/Resolved]
  - Portal hypertension [Recovered/Resolved]
  - Venoocclusive liver disease [Recovered/Resolved]
  - Condition aggravated [Recovered/Resolved]
